FAERS Safety Report 15337692 (Version 1)
Quarter: 2018Q3

REPORT INFORMATION
  Report Type: Spontaneous
  Country: CN (occurrence: CN)
  Receive Date: 20180831
  Receipt Date: 20180831
  Transmission Date: 20181010
  Serious: Yes (Hospitalization)
  Sender: FDA-Public Use
  Company Number: CN-ROCHE-2177233

PATIENT
  Age: 63 Year
  Sex: Female
  Weight: 60 kg

DRUGS (2)
  1. MABTHERA [Suspect]
     Active Substance: RITUXIMAB
     Indication: CHRONIC LYMPHOCYTIC LEUKAEMIA
     Dosage: FOR LOT NO. H0246
     Route: 041
     Dates: start: 20180703, end: 20180703
  2. MABTHERA [Suspect]
     Active Substance: RITUXIMAB
     Dosage: FOR LOT NO. SH0117
     Route: 041
     Dates: start: 20180703, end: 20180703

REACTIONS (2)
  - Hyperpyrexia [Recovering/Resolving]
  - Chills [Recovered/Resolved]

NARRATIVE: CASE EVENT DATE: 20180703
